FAERS Safety Report 13907393 (Version 1)
Quarter: 2017Q3

REPORT INFORMATION
  Report Type: Spontaneous
  Country: US (occurrence: US)
  Receive Date: 20170825
  Receipt Date: 20170825
  Transmission Date: 20171127
  Serious: No
  Sender: FDA-Public Use
  Company Number: US-ROCHE-1039568

PATIENT
  Sex: Male

DRUGS (2)
  1. NUTROPIN [Suspect]
     Active Substance: SOMATROPIN
     Indication: PRODUCT USED FOR UNKNOWN INDICATION
     Dosage: 2 MONTHS AGO
     Route: 058
  2. TESTOSTERON [Concomitant]
     Active Substance: TESTOSTERONE
     Dosage: HIGH DOSE
     Route: 065

REACTIONS (2)
  - Feeling hot [Recovered/Resolved with Sequelae]
  - Insomnia [Recovered/Resolved with Sequelae]
